FAERS Safety Report 6158541-5 (Version None)
Quarter: 2009Q2

REPORT INFORMATION
  Report Type: 
  Country: None (occurrence: None)
  Receive Date: 20090417
  Receipt Date: 20090414
  Transmission Date: 20091009
  Serious: Yes (Death, Hospitalization, Other)
  Sender: FDA-Public Use
  Company Number: PHEH2007US05544

PATIENT
  Sex: Female
  Weight: 167.8 kg

DRUGS (10)
  1. AREDIA [Suspect]
     Dosage: UNK
  2. ZOMETA [Suspect]
     Dosage: UNK
     Dates: start: 20020814, end: 20020814
  3. ZOLADEX [Concomitant]
  4. ARIMIDEX [Concomitant]
  5. AROMASIN [Concomitant]
     Dosage: UNK
     Dates: start: 20040101
  6. XELODA [Concomitant]
  7. METOPROLOL TARTRATE [Concomitant]
  8. PERCOCET [Concomitant]
  9. OXYCODONE HCL [Concomitant]
  10. ENOXAPARIN SODIUM [Concomitant]

REACTIONS (34)
  - ANXIETY [None]
  - ARTHRALGIA [None]
  - ASTHENIA [None]
  - BLOOD GLUCOSE INCREASED [None]
  - BONE PAIN [None]
  - CHILLS [None]
  - CONDITION AGGRAVATED [None]
  - DEATH [None]
  - DEEP VEIN THROMBOSIS [None]
  - DIABETES MELLITUS [None]
  - DIZZINESS [None]
  - DYSPNOEA [None]
  - FALL [None]
  - FRACTURE TREATMENT [None]
  - GROIN PAIN [None]
  - HIP ARTHROPLASTY [None]
  - HIP FRACTURE [None]
  - HUMERUS FRACTURE [None]
  - INFUSION RELATED REACTION [None]
  - INJURY [None]
  - METASTASES TO LYMPH NODES [None]
  - METASTATIC PAIN [None]
  - MYALGIA [None]
  - NEOPLASM PROGRESSION [None]
  - OEDEMA PERIPHERAL [None]
  - OSTEONECROSIS [None]
  - PAIN [None]
  - PULMONARY EMBOLISM [None]
  - PYREXIA [None]
  - RIB FRACTURE [None]
  - SHOULDER OPERATION [None]
  - SKIN LESION [None]
  - SYNCOPE [None]
  - TOOTH INJURY [None]
